FAERS Safety Report 17035284 (Version 1)
Quarter: 2019Q4

REPORT INFORMATION
  Report Type: Spontaneous
  Country: GB (occurrence: GB)
  Receive Date: 20191115
  Receipt Date: 20191115
  Transmission Date: 20200122
  Serious: Yes (Hospitalization)
  Sender: FDA-Public Use
  Company Number: GB-TEVA-2019-GB-1138013

PATIENT
  Age: 65 Year
  Sex: Male
  Weight: 76.2 kg

DRUGS (6)
  1. SIMVASTATIN. [Concomitant]
     Active Substance: SIMVASTATIN
  2. BUDESONIDE. [Concomitant]
     Active Substance: BUDESONIDE
     Dosage: AT NIGHT
     Route: 054
  3. LISINOPRIL. [Concomitant]
     Active Substance: LISINOPRIL
  4. MEZAVANT XL [Concomitant]
     Active Substance: MESALAMINE
  5. OMEPRAZOLE. [Concomitant]
     Active Substance: OMEPRAZOLE
  6. IBUPROFEN. [Suspect]
     Active Substance: IBUPROFEN
     Indication: BACK PAIN
     Dosage: 1200 MILLIGRAM
     Route: 048
     Dates: start: 20171207, end: 20180107

REACTIONS (7)
  - Proctitis [Unknown]
  - Mucous stools [Unknown]
  - Abdominal distension [Unknown]
  - Proctalgia [Unknown]
  - Rectal haemorrhage [Unknown]
  - Colitis ulcerative [Recovering/Resolving]
  - Rectal abscess [Unknown]

NARRATIVE: CASE EVENT DATE: 20180122
